FAERS Safety Report 6403161-8 (Version None)
Quarter: 2009Q4

REPORT INFORMATION
  Report Type: 
  Country: None (occurrence: None)
  Receive Date: 20091016
  Receipt Date: 20091007
  Transmission Date: 20100525
  Serious: Yes (Hospitalization)
  Sender: FDA-Public Use
  Company Number: FR-ASTRAZENECA-2009SE18663

PATIENT
  Age: 59 Year
  Sex: Male

DRUGS (11)
  1. CRESTOR [Suspect]
     Route: 048
  2. NEXIUM [Suspect]
     Route: 048
  3. CISPLATIN [Suspect]
     Route: 042
     Dates: start: 20080216
  4. LYRICA [Suspect]
     Route: 065
  5. 5 FLUOROURACYL [Concomitant]
     Dates: start: 20081216
  6. CITALOPRAM HYDROBROMIDE [Concomitant]
  7. MYOLASTAN [Concomitant]
  8. PIASCLEDINE [Concomitant]
  9. MONOCRIXO [Concomitant]
  10. LEVOTHYROXINE SODIUM [Concomitant]
  11. APROVEL [Concomitant]

REACTIONS (1)
  - RENAL FAILURE ACUTE [None]
